FAERS Safety Report 5902669-9 (Version None)
Quarter: 2008Q3

REPORT INFORMATION
  Report Type: 
  Country: None (occurrence: None)
  Receive Date: 20080929
  Receipt Date: 20080929
  Transmission Date: 20090109
  Serious: No
  Sender: FDA-Public Use
  Company Number: None

PATIENT
  Sex: Female
  Weight: 64.6376 kg

DRUGS (1)
  1. BUTORPHANOL TARTRATE [Suspect]
     Indication: MIGRAINE
     Dosage: ONE SPRAY ONE NOSTRI ONSET OF H/A NOSTRIL
     Route: 045
     Dates: start: 20080907

REACTIONS (18)
  - ABNORMAL DREAMS [None]
  - ANGER [None]
  - ANXIETY [None]
  - DIZZINESS [None]
  - DYSPNOEA [None]
  - ENERGY INCREASED [None]
  - FATIGUE [None]
  - FEELING ABNORMAL [None]
  - HALLUCINATION [None]
  - HEAD DISCOMFORT [None]
  - HYPOVENTILATION [None]
  - MEMORY IMPAIRMENT [None]
  - MIGRAINE WITH AURA [None]
  - NASAL DISCOMFORT [None]
  - OVERDOSE [None]
  - PARAESTHESIA [None]
  - POOR QUALITY SLEEP [None]
  - PRURITUS [None]
